FAERS Safety Report 12191249 (Version 1)
Quarter: 2016Q1

REPORT INFORMATION
  Report Type: Spontaneous
  Country: US (occurrence: US)
  Receive Date: 20160318
  Receipt Date: 20160318
  Transmission Date: 20160526
  Serious: Yes (Hospitalization)
  Sender: FDA-Public Use
  Company Number: US-RECORDATI RARE DISEASES-US-R13005-16-00046

PATIENT
  Age: 23 Year
  Sex: Female

DRUGS (4)
  1. THC [Concomitant]
     Active Substance: DRONABINOL
     Indication: PRODUCT USED FOR UNKNOWN INDICATION
     Route: 065
  2. METHAMPHETAMINE [Suspect]
     Active Substance: METHAMPHETAMINE
     Indication: PRODUCT USED FOR UNKNOWN INDICATION
     Route: 065
  3. BENZODIAZEPINE [Concomitant]
     Active Substance: BENZODIAZEPINE
     Indication: PRODUCT USED FOR UNKNOWN INDICATION
     Route: 065
  4. OLANZAPINE. [Concomitant]
     Active Substance: OLANZAPINE
     Route: 065

REACTIONS (5)
  - Toxic encephalopathy [Recovered/Resolved]
  - Toxicity to various agents [Recovered/Resolved]
  - Hyperammonaemia [Recovered/Resolved]
  - Drug abuse [Unknown]
  - Substance-induced psychotic disorder [Recovered/Resolved]
